FAERS Safety Report 6756195-8 (Version None)
Quarter: 2010Q2

REPORT INFORMATION
  Report Type: 
  Country: None (occurrence: None)
  Receive Date: 20100604
  Receipt Date: 20100525
  Transmission Date: 20101027
  Serious: Yes (Other)
  Sender: FDA-Public Use
  Company Number: PHHY2010FR34829

PATIENT
  Sex: Female

DRUGS (2)
  1. FEMARA [Suspect]
     Dosage: UNK
  2. TAMOXIFEN CITRATE [Suspect]

REACTIONS (4)
  - COMPLEX REGIONAL PAIN SYNDROME [None]
  - MYALGIA [None]
  - PAIN IN EXTREMITY [None]
  - PHLEBITIS [None]
